FAERS Safety Report 8443211-0 (Version None)
Quarter: 2012Q2

REPORT INFORMATION
  Report Type: 
  Country: None (occurrence: None)
  Receive Date: 20120617
  Receipt Date: 20120606
  Transmission Date: 20120825
  Serious: Yes (Other)
  Sender: FDA-Public Use
  Company Number: JP-VERTEX PHARMACEUTICALS INC.-AE-2012-008528

PATIENT
  Age: 68 Year
  Sex: Female

DRUGS (4)
  1. PEGINTERFERON ALFA-2B [Concomitant]
     Route: 051
     Dates: start: 20120601
  2. TELAVIC (TELAPREVIR) [Suspect]
     Route: 048
     Dates: start: 20120603
  3. TELAVIC (TELAPREVIR) [Suspect]
     Route: 048
     Dates: start: 20120601
  4. RIBAVIRIN [Concomitant]
     Route: 048
     Dates: start: 20120601

REACTIONS (3)
  - NAUSEA [None]
  - DECREASED APPETITE [None]
  - DIZZINESS [None]
